FAERS Safety Report 6142464-1 (Version None)
Quarter: 2009Q2

REPORT INFORMATION
  Report Type: 
  Country: None (occurrence: None)
  Receive Date: 20090403
  Receipt Date: 20071121
  Transmission Date: 20091009
  Serious: Yes (Death, Hospitalization, Other)
  Sender: FDA-Public Use
  Company Number: US-ASTRAZENECA-2006UW21558

PATIENT
  Age: 20783 Day
  Sex: Male
  Weight: 156 kg

DRUGS (68)
  1. SEROQUEL [Suspect]
     Indication: SCHIZOPHRENIA
     Route: 048
  2. SEROQUEL [Suspect]
     Dosage: 20 MG TO 600 MG
     Route: 048
     Dates: start: 19991011
  3. CLOZARIL [Concomitant]
  4. GEODON [Concomitant]
  5. HALDOL [Concomitant]
  6. NAVANE [Concomitant]
  7. RISPERDAL [Concomitant]
  8. STELAZINE [Concomitant]
  9. THORAZINE [Concomitant]
  10. TRILAFON/TRIAVIL [Concomitant]
  11. ZYPREXA/SYMBYAX [Concomitant]
  12. HUMULIN R [Concomitant]
  13. NITROSTAT [Concomitant]
  14. TRIAMTERENE [Concomitant]
  15. COUMADIN [Concomitant]
  16. TAZOCIN [Concomitant]
  17. SENSIPAR [Concomitant]
  18. AVANDIA [Concomitant]
  19. METOCLOPRAMIDE [Concomitant]
  20. NEURONTIN [Concomitant]
  21. QUININE SULFATE [Concomitant]
  22. PHENERGAN [Concomitant]
  23. TOPROL-XL [Concomitant]
  24. GLIPIZIDE [Concomitant]
  25. SYNTHROID [Concomitant]
  26. ALDACTONE [Concomitant]
  27. CORDARONE [Concomitant]
  28. ZAROXOLYN [Concomitant]
  29. LORAZEPAM [Concomitant]
  30. LASIX [Concomitant]
  31. ADENOSINE [Concomitant]
  32. CEFTRIAXONE [Concomitant]
  33. MEPROZINE [Concomitant]
  34. CELEBREX [Concomitant]
  35. AMOX TR CV [Concomitant]
  36. HYDROCODONE BITARTRATE [Concomitant]
  37. POTASSIUM CHLORIDE [Concomitant]
  38. ISOSORBIDE [Concomitant]
  39. MUCINEX [Concomitant]
  40. DOXYCYCLINE [Concomitant]
  41. ZETIA [Concomitant]
  42. CADUET [Concomitant]
  43. HEPARIN [Concomitant]
  44. PERCOCET [Concomitant]
  45. MANNITOL [Concomitant]
  46. DULCOLAX [Concomitant]
  47. PARICALCITOL [Concomitant]
  48. MORPHINE [Concomitant]
  49. DEXTROSE [Concomitant]
  50. MIDAZOLAM HCL [Concomitant]
  51. MINOCYCLINE HCL [Concomitant]
  52. DIGOXIN [Concomitant]
  53. VANCOMYCIN HCL [Concomitant]
  54. LOVENOX [Concomitant]
  55. ULTRAM [Concomitant]
  56. TOBRAMYCIN [Concomitant]
  57. DOCUSATE SODIUM [Concomitant]
  58. NARCAN [Concomitant]
  59. PROTAMINE SULFATE [Concomitant]
  60. DEXTROSE 5% [Concomitant]
  61. ALBUMIN (HUMAN) [Concomitant]
  62. PREVACID [Concomitant]
  63. PROTONIX [Concomitant]
  64. MAGNESIUM SULFATE [Concomitant]
  65. ALTACE [Concomitant]
  66. BENADRYL [Concomitant]
  67. XANAX [Concomitant]
  68. MAALOX [Concomitant]

REACTIONS (37)
  - ACUTE MYOCARDIAL INFARCTION [None]
  - ACUTE RESPIRATORY FAILURE [None]
  - ANAEMIA OF CHRONIC DISEASE [None]
  - ARTERIOSCLEROSIS CORONARY ARTERY [None]
  - ATRIAL FIBRILLATION [None]
  - BACK PAIN [None]
  - BRONCHITIS [None]
  - CARDIAC ARREST [None]
  - CARDIAC FAILURE CONGESTIVE [None]
  - CELLULITIS [None]
  - CHRONIC OBSTRUCTIVE PULMONARY DISEASE [None]
  - CORONARY ARTERY DISEASE [None]
  - COUGH [None]
  - DEEP VEIN THROMBOSIS [None]
  - DIABETIC NEUROPATHY [None]
  - HEADACHE [None]
  - HYPERTENSION [None]
  - HYPOGLYCAEMIA [None]
  - HYPOTENSION [None]
  - HYPOTHYROIDISM [None]
  - ISCHAEMIC CARDIOMYOPATHY [None]
  - LYMPHOEDEMA [None]
  - MENTAL DISORDER [None]
  - MYOCARDIAL ISCHAEMIA [None]
  - NECK PAIN [None]
  - OROPHARYNGEAL PAIN [None]
  - PERIPHERAL VASCULAR DISORDER [None]
  - PSYCHOTIC DISORDER [None]
  - PYREXIA [None]
  - RENAL FAILURE CHRONIC [None]
  - RHINORRHOEA [None]
  - SCAR [None]
  - SINUSITIS [None]
  - SKIN ULCER [None]
  - SLEEP APNOEA SYNDROME [None]
  - SYNCOPE [None]
  - TARDIVE DYSKINESIA [None]
